FAERS Safety Report 22044802 (Version 1)
Quarter: 2023Q1

REPORT INFORMATION
  Report Type: Spontaneous
  Country: US (occurrence: None)
  Receive Date: 20230227
  Receipt Date: 20230227
  Transmission Date: 20230418
  Serious: Yes (Other)
  Sender: FDA-Public Use
  Company Number: None

PATIENT
  Age: 54 Year
  Sex: Female

DRUGS (2)
  1. AZITHROMYCIN [Suspect]
     Active Substance: AZITHROMYCIN
     Dosage: OTHER QUANTITY : 6 TABLET(S);?
     Dates: start: 20230225, end: 20230225
  2. ALENDRONATE SODIUM [Suspect]
     Active Substance: ALENDRONATE SODIUM

REACTIONS (15)
  - Product dispensing error [None]
  - Diarrhoea [None]
  - Abdominal pain upper [None]
  - Dizziness [None]
  - Nausea [None]
  - Insomnia [None]
  - Heart rate increased [None]
  - Blood pressure increased [None]
  - Decreased appetite [None]
  - Abdominal distension [None]
  - Eructation [None]
  - Flatulence [None]
  - Chest discomfort [None]
  - Dyspnoea [None]
  - Somatic symptom disorder [None]

NARRATIVE: CASE EVENT DATE: 20230227
